FAERS Safety Report 25718583 (Version 1)
Quarter: 2025Q3

REPORT INFORMATION
  Report Type: Spontaneous
  Country: US (occurrence: US)
  Receive Date: 20250823
  Receipt Date: 20250823
  Transmission Date: 20251020
  Serious: No
  Sender: ELI LILLY AND COMPANY
  Company Number: US-ELI_LILLY_AND_COMPANY-US202508021345

PATIENT
  Age: 54 Year

DRUGS (2)
  1. BASAGLAR [Suspect]
     Active Substance: INSULIN GLARGINE
     Indication: Type 2 diabetes mellitus
     Dosage: 18 U, EACH MORNING
     Route: 065
     Dates: start: 202502
  2. BASAGLAR [Suspect]
     Active Substance: INSULIN GLARGINE
     Dosage: 18 U, EACH MORNING
     Route: 065
     Dates: start: 202502

REACTIONS (2)
  - Accidental underdose [Unknown]
  - Injection site pain [Unknown]
